FAERS Safety Report 9462273 (Version 1)
Quarter: 2013Q3

REPORT INFORMATION
  Report Type: Spontaneous
  Country: PR (occurrence: PR)
  Receive Date: 20130816
  Receipt Date: 20130816
  Transmission Date: 20140515
  Serious: Yes (Life-Threatening, Hospitalization, Other)
  Sender: FDA-Public Use
  Company Number: PR-GLAXOSMITHKLINE-B0915730A

PATIENT
  Age: 16 Year
  Sex: Female

DRUGS (2)
  1. BUPROPION [Suspect]
     Route: 065
  2. ARIPIPRAZOLE [Suspect]
     Route: 065

REACTIONS (9)
  - Overdose [Recovered/Resolved]
  - Convulsion [Unknown]
  - Body temperature increased [Unknown]
  - Cognitive disorder [Unknown]
  - Dyspnoea [Unknown]
  - Extrapyramidal disorder [Unknown]
  - Hyperreflexia [Unknown]
  - Respiratory depression [Unknown]
  - Hypotension [Unknown]
